FAERS Safety Report 9054347 (Version 1)
Quarter: 2013Q1

REPORT INFORMATION
  Report Type: Spontaneous
  Country: US (occurrence: US)
  Receive Date: 20130208
  Receipt Date: 20130208
  Transmission Date: 20140127
  Serious: Yes (Hospitalization, Disabling, Other)
  Sender: FDA-Public Use
  Company Number: US-TEVA-385272USA

PATIENT
  Age: 70 None
  Sex: Female

DRUGS (2)
  1. ALENDRONIC ACID [Suspect]
     Dates: start: 200803, end: 200806
  2. FOSAMAX [Suspect]
     Dates: start: 200301, end: 200802

REACTIONS (4)
  - Toxicity to various agents [Unknown]
  - Femur fracture [Unknown]
  - Bone disorder [Unknown]
  - Low turnover osteopathy [Unknown]
